FAERS Safety Report 11235299 (Version 1)
Quarter: 2015Q3

REPORT INFORMATION
  Report Type: Spontaneous
  Country: US (occurrence: US)
  Receive Date: 20150702
  Receipt Date: 20150702
  Transmission Date: 20151125
  Serious: No
  Sender: FDA-Public Use
  Company Number: US-GLAXOSMITHKLINE-US2015094074

PATIENT
  Age: 68 Year
  Sex: Female

DRUGS (1)
  1. NICODERM CQ [Suspect]
     Active Substance: NICOTINE
     Indication: SMOKING CESSATION THERAPY
     Dosage: 14 MG, UNK

REACTIONS (4)
  - Drug administration error [Unknown]
  - Application site discolouration [Recovered/Resolved]
  - Application site dryness [Recovered/Resolved]
  - Application site erythema [Recovered/Resolved]
